FAERS Safety Report 25732060 (Version 1)
Quarter: 2025Q3

REPORT INFORMATION
  Report Type: Spontaneous
  Country: US (occurrence: US)
  Receive Date: 20250827
  Receipt Date: 20250827
  Transmission Date: 20251020
  Serious: No
  Sender: DR REDDYS
  Company Number: US-DRL-USA-USA/2025/08/012395

PATIENT
  Sex: Male
  Weight: 68 kg

DRUGS (5)
  1. DIFLUPREDNATE [Suspect]
     Active Substance: DIFLUPREDNATE
     Indication: Posterior capsule opacification
     Dosage: A REGIMEN OF SIX TIMES A DAY FIRST WEEK
     Route: 047
     Dates: start: 202412
  2. DIFLUPREDNATE [Suspect]
     Active Substance: DIFLUPREDNATE
     Dosage: FOUR TIMES A DAY FOR ONE WEEK
     Route: 047
  3. DIFLUPREDNATE [Suspect]
     Active Substance: DIFLUPREDNATE
     Dosage: TWO TIMES A DAY
     Route: 047
  4. DIFLUPREDNATE [Suspect]
     Active Substance: DIFLUPREDNATE
     Dosage: TAPERING DOWN TO NOTHING THE FOURTH TO ONE TIME A DAY THE FOURTH WEEK.
     Route: 047
  5. PREDNISOLONE [Concomitant]
     Active Substance: PREDNISOLONE
     Indication: Product used for unknown indication

REACTIONS (8)
  - Visual impairment [Not Recovered/Not Resolved]
  - Fear [Unknown]
  - Treatment noncompliance [Unknown]
  - Drug ineffective [Not Recovered/Not Resolved]
  - Off label use [Not Recovered/Not Resolved]
  - Product use issue [Unknown]
  - Incorrect product administration duration [Unknown]
  - Product knowledge deficit [Unknown]
